FAERS Safety Report 22379909 (Version 1)
Quarter: 2023Q2

REPORT INFORMATION
  Report Type: Spontaneous
  Country: US (occurrence: US)
  Receive Date: 20230529
  Receipt Date: 20230529
  Transmission Date: 20230721
  Serious: No
  Sender: FDA-Public Use
  Company Number: US-TEVA-2023-US-2887497

PATIENT
  Age: 73 Year
  Sex: Male

DRUGS (1)
  1. GABAPENTIN [Suspect]
     Active Substance: GABAPENTIN
     Indication: Neuralgia
     Route: 048
     Dates: start: 2023

REACTIONS (5)
  - Insomnia [Unknown]
  - Product prescribing issue [Unknown]
  - Product use in unapproved indication [Unknown]
  - Anxiety [Unknown]
  - Intentional product misuse [Unknown]

NARRATIVE: CASE EVENT DATE: 20230101
